FAERS Safety Report 8295487-0 (Version None)
Quarter: 2012Q2

REPORT INFORMATION
  Report Type: 
  Country: None (occurrence: None)
  Receive Date: 20120418
  Receipt Date: 20120412
  Transmission Date: 20120825
  Serious: Yes (Death, Hospitalization)
  Sender: FDA-Public Use
  Company Number: CA-CELGENEUS-028-C5013-12021489

PATIENT
  Sex: Female
  Weight: 45 kg

DRUGS (9)
  1. ENOXAPARIN [Concomitant]
     Dosage: 40,000 UNITS
     Route: 058
     Dates: start: 20101222, end: 20110215
  2. ASPIRIN [Concomitant]
     Dosage: 81 MILLIGRAM
     Route: 048
     Dates: start: 20101118, end: 20101221
  3. CC-5013 [Suspect]
     Dosage: 10 MILLIGRAM
     Route: 048
     Dates: start: 20120209, end: 20120213
  4. DEXAMETHASONE [Suspect]
     Indication: MULTIPLE MYELOMA
     Dosage: 20 MILLIGRAM
     Route: 065
     Dates: start: 20111124
  5. CC-5013 [Suspect]
     Indication: MULTIPLE MYELOMA
     Dosage: 10 MILLIGRAM
     Route: 048
     Dates: start: 20111124
  6. ENOXAPARIN [Concomitant]
     Dosage: 60,000 UNITS
     Route: 058
     Dates: start: 20110216
  7. CEFTRIAXONE [Concomitant]
     Indication: PNEUMONIA
     Dosage: 1 GRAM
     Route: 041
     Dates: start: 20120211, end: 20120214
  8. DEXAMETHASONE [Suspect]
     Dosage: 20 MILLIGRAM
     Route: 065
     Dates: start: 20120209, end: 20120213
  9. AZITHROMYCIN [Concomitant]
     Indication: PNEUMONIA
     Dosage: 500 MILLIGRAM
     Route: 048
     Dates: start: 20120211, end: 20120214

REACTIONS (3)
  - PNEUMONIA [None]
  - DEATH [None]
  - PULMONARY EMBOLISM [None]
